FAERS Safety Report 9381696 (Version 1)
Quarter: 2013Q3

REPORT INFORMATION
  Report Type: Spontaneous
  Country: NL (occurrence: NL)
  Receive Date: 20130703
  Receipt Date: 20130703
  Transmission Date: 20140515
  Serious: Yes (Life-Threatening, Other)
  Sender: FDA-Public Use
  Company Number: NL-ASTELLAS-2013EU005554

PATIENT
  Age: 19 Year
  Sex: Female

DRUGS (7)
  1. TACROLIMUS SYSTEMIC [Suspect]
     Indication: IMMUNOSUPPRESSION
     Dosage: UNK
     Route: 065
  2. MENCEVAX [Suspect]
     Indication: PROPHYLAXIS
     Dosage: UNK
     Route: 065
  3. ECULIZUMAB [Suspect]
     Dosage: 2 DF, WEEKLY
     Route: 065
     Dates: start: 200901
  4. BASILIXIMAB [Concomitant]
     Indication: IMMUNOSUPPRESSION
     Dosage: UNK
     Route: 065
  5. MYCOPHENOLATE MOFETIL [Concomitant]
     Indication: IMMUNOSUPPRESSION
     Dosage: UNK
     Route: 065
  6. PREDNISOLON                        /00016201/ [Concomitant]
     Indication: IMMUNOSUPPRESSION
     Dosage: UNK
     Route: 065
  7. PLASMA [Concomitant]
     Indication: PROPHYLAXIS
     Dosage: UNK
     Route: 065

REACTIONS (2)
  - Meningococcal sepsis [Recovered/Resolved]
  - Vaccination failure [Unknown]
